FAERS Safety Report 24408788 (Version 1)
Quarter: 2024Q4

REPORT INFORMATION
  Report Type: Spontaneous
  Country: US (occurrence: US)
  Receive Date: 20241007
  Receipt Date: 20241007
  Transmission Date: 20250114
  Serious: No
  Sender: BIONPHARMA
  Company Number: US-Bion-013976

PATIENT
  Sex: Male

DRUGS (1)
  1. ATOVAQUONE [Suspect]
     Active Substance: ATOVAQUONE
     Indication: Product used for unknown indication
     Dates: start: 202402

REACTIONS (1)
  - Recalled product administered [Unknown]
